FAERS Safety Report 16739392 (Version 1)
Quarter: 2019Q3

REPORT INFORMATION
  Report Type: Spontaneous
  Country: US (occurrence: US)
  Receive Date: 20190826
  Receipt Date: 20190826
  Transmission Date: 20191005
  Serious: Yes (Hospitalization)
  Sender: FDA-Public Use
  Company Number: US-PROCTER_AND_GAMBLE-GS19086833

PATIENT
  Age: 77 Year
  Sex: Female

DRUGS (3)
  1. METAMUCIL THERAPY FOR REGULARITY [Suspect]
     Active Substance: PSYLLIUM HUSK
     Indication: CONSTIPATION
     Dosage: 1 TABLESPOON IN 8 OUNCES OF WATER
     Route: 048
  2. METAMUCIL THERAPY FOR REGULARITY [Suspect]
     Active Substance: PSYLLIUM HUSK
     Dosage: 2 TABLESPOON IN 8 OUNCES OF WATER
     Route: 048
  3. METAMUCIL THERAPY FOR REGULARITY [Suspect]
     Active Substance: PSYLLIUM HUSK
     Dosage: 2 TABLESPOON IN 8 OUNCES OF WATER THREE TIMES PER DAY
     Route: 048

REACTIONS (8)
  - Diarrhoea [Unknown]
  - Overdose [Unknown]
  - Drug ineffective [Unknown]
  - Gastrointestinal pain [Recovered/Resolved]
  - Malaise [Unknown]
  - Foreign body in gastrointestinal tract [Unknown]
  - Constipation [Recovering/Resolving]
  - Incorrect dose administered [Unknown]

NARRATIVE: CASE EVENT DATE: 201908
